FAERS Safety Report 7350666-1 (Version None)
Quarter: 2011Q1

REPORT INFORMATION
  Report Type: 
  Country: None (occurrence: None)
  Receive Date: 20110303
  Receipt Date: 20110222
  Transmission Date: 20110831
  Serious: Yes (Other)
  Sender: FDA-Public Use
  Company Number: 026749

PATIENT
  Sex: Female
  Weight: 63 kg

DRUGS (2)
  1. CERTOLIZUMAB PEGOL (CERTOLIZUMAB PEGOL) [Suspect]
     Indication: RHEUMATOID ARTHRITIS
     Dosage: (400 MG 1X/4 WEEKS SUBCUTANEOUS) ; (400 1X/4 WEEKS SUBCUTANEOUS)
     Route: 058
     Dates: start: 20031014, end: 20100713
  2. CERTOLIZUMAB PEGOL (CERTOLIZUMAB PEGOL) [Suspect]
     Indication: RHEUMATOID ARTHRITIS
     Dosage: (400 MG 1X/4 WEEKS SUBCUTANEOUS) ; (400 1X/4 WEEKS SUBCUTANEOUS)
     Route: 058
     Dates: start: 20100813

REACTIONS (7)
  - DRUG DOSE OMISSION [None]
  - GASTROENTERITIS [None]
  - URINARY TRACT INFECTION [None]
  - ULNA FRACTURE [None]
  - SPINAL COLUMN STENOSIS [None]
  - CHOLESTEATOMA [None]
  - BASAL CELL CARCINOMA [None]
